FAERS Safety Report 8066558-9 (Version None)
Quarter: 2012Q1

REPORT INFORMATION
  Report Type: 
  Country: None (occurrence: None)
  Receive Date: 20120124
  Receipt Date: 20120117
  Transmission Date: 20120608
  Serious: Yes (Hospitalization)
  Sender: FDA-Public Use
  Company Number: PHHY2012NL004299

PATIENT
  Sex: Male

DRUGS (7)
  1. ZOMETA [Suspect]
     Dosage: 4 MG/100 ML, ONCE PER 28 DAYS
     Dates: start: 20111220
  2. AMLODIPINE [Concomitant]
     Dosage: 5 MG, UNK
  3. FENTANYL [Concomitant]
     Dosage: 100 UG X 72 H
  4. LEUPROLIDE ACETATE [Concomitant]
  5. ZOMETA [Suspect]
     Indication: PROSTATE CANCER METASTATIC
     Dosage: 4 MG/100 ML, ONCE PER 28 DAYS
     Dates: start: 20090421
  6. BICALUTAMIDE [Concomitant]
  7. ACETAMINOPHEN [Concomitant]
     Dosage: 500 MG X 4/6

REACTIONS (4)
  - TRANSIENT ISCHAEMIC ATTACK [None]
  - MOVEMENT DISORDER [None]
  - CEREBROVASCULAR ACCIDENT [None]
  - APHASIA [None]
